FAERS Safety Report 8089643-4 (Version None)
Quarter: 2012Q1

REPORT INFORMATION
  Report Type: 
  Country: None (occurrence: None)
  Receive Date: 20120128
  Receipt Date: 20110812
  Transmission Date: 20120608
  Serious: No
  Sender: FDA-Public Use
  Company Number: US-ABBOTT-11P-163-0727797-00

PATIENT
  Sex: Female

DRUGS (14)
  1. HUMIRA [Suspect]
     Indication: CROHN'S DISEASE
     Dosage: 160 MG LOADING DOSE
     Dates: start: 20110520, end: 20110520
  2. XIFAXAN [Concomitant]
     Indication: INFLAMMATION
  3. PENTASA [Concomitant]
     Indication: PRODUCT USED FOR UNKNOWN INDICATION
     Dosage: 3 TABLETS QID
  4. NEXIUM [Concomitant]
     Indication: PROPHYLAXIS
  5. BIFERA [Concomitant]
     Indication: MINERAL SUPPLEMENTATION
     Dosage: DAILY
  6. PREDNISONE TAB [Concomitant]
  7. XIFAXAN [Concomitant]
     Indication: ANAL FISTULA
     Dosage: 200MG 2 TABLETS BID
  8. FOSAMAX [Concomitant]
     Indication: OSTEOPOROSIS
     Dosage: 70MG WEEKLY
  9. SINEMET [Concomitant]
     Indication: PARKINSON'S DISEASE
     Dosage: 25/100 MG QID
  10. VITAMIN TAB [Concomitant]
     Indication: PRODUCT USED FOR UNKNOWN INDICATION
     Dosage: DAILY
  11. HUMIRA [Suspect]
     Route: 058
  12. AZILECT [Concomitant]
     Indication: PARKINSON'S DISEASE
     Dosage: 0.6 MG DAILY
  13. PREDNISONE TAB [Concomitant]
     Indication: PRODUCT USED FOR UNKNOWN INDICATION
     Dosage: BID - FOR ONE DAY- THEN 10 MG NEXT DAY
  14. NEXIUM [Concomitant]
     Indication: GASTROOESOPHAGEAL REFLUX DISEASE
     Dosage: 40MG DAILY

REACTIONS (5)
  - INJECTION SITE HAEMATOMA [None]
  - INJECTION SITE ERYTHEMA [None]
  - DRUG EFFECT DECREASED [None]
  - TREMOR [None]
  - INJECTION SITE HAEMORRHAGE [None]
